FAERS Safety Report 8049620-6 (Version None)
Quarter: 2012Q1

REPORT INFORMATION
  Report Type: 
  Country: None (occurrence: None)
  Receive Date: 20120117
  Receipt Date: 20120112
  Transmission Date: 20120608
  Serious: Yes (Other)
  Sender: FDA-Public Use
  Company Number: CN-BAYER-2012-003864

PATIENT
  Sex: Female

DRUGS (1)
  1. CLOTRIMAZOLE [Suspect]
     Indication: VULVOVAGINITIS
     Dosage: 1 DF, ONCE
     Route: 067
     Dates: start: 20120102

REACTIONS (2)
  - MEDICATION RESIDUE [None]
  - VAGINAL HAEMORRHAGE [None]
